FAERS Safety Report 18780810 (Version 1)
Quarter: 2021Q1

REPORT INFORMATION
  Report Type: Spontaneous
  Country: US (occurrence: US)
  Receive Date: 20210123
  Receipt Date: 20210123
  Transmission Date: 20210419
  Serious: No
  Sender: FDA-Public Use
  Company Number: None

PATIENT
  Age: 64 Year
  Sex: Male

DRUGS (1)
  1. SUTENT [Suspect]
     Active Substance: SUNITINIB MALATE
     Route: 048
     Dates: start: 20201204

REACTIONS (5)
  - Platelet count decreased [None]
  - Blood pressure increased [None]
  - White blood cell count decreased [None]
  - Blood creatinine increased [None]
  - Therapy interrupted [None]

NARRATIVE: CASE EVENT DATE: 20210104
